FAERS Safety Report 7255504-3 (Version None)
Quarter: 2011Q1

REPORT INFORMATION
  Report Type: 
  Country: None (occurrence: None)
  Receive Date: 20110129
  Receipt Date: 20100329
  Transmission Date: 20110831
  Serious: No
  Sender: FDA-Public Use
  Company Number: US-ABBOTT-10P-163-0630921-00

PATIENT
  Sex: Female
  Weight: 90.8 kg

DRUGS (1)
  1. HUMIRA [Suspect]
     Indication: RHEUMATOID ARTHRITIS
     Dates: start: 20090916

REACTIONS (5)
  - SKIN EXFOLIATION [None]
  - RASH MACULAR [None]
  - DRY SKIN [None]
  - OEDEMA PERIPHERAL [None]
  - RASH PRURITIC [None]
